FAERS Safety Report 8763143 (Version 1)
Quarter: 2012Q4

REPORT INFORMATION
  Report Type: 
  Country: US (occurrence: US)
  Receive Date: 20120831
  Receipt Date: 20120831
  Transmission Date: 20130627
  Serious: Yes (Other)
  Sender: FDA-Public Use
  Company Number: US-BAYER-2012-089048

PATIENT
  Age: 43 Year
  Sex: Female
  Weight: 136.5 kg

DRUGS (9)
  1. YASMIN [Suspect]
  2. YAZ [Suspect]
     Indication: MENSTRUAL CYCLE MANAGEMENT
  3. JANTOVEN [Concomitant]
  4. ALEVE [Concomitant]
  5. LEVOTHYROXINE [Concomitant]
  6. EFFEXOR XR [Concomitant]
  7. PROVENTIL [Concomitant]
  8. ZYRTEC [Concomitant]
  9. PARLODEL [Concomitant]

REACTIONS (1)
  - Deep vein thrombosis [None]
